FAERS Safety Report 8830870 (Version 1)
Quarter: 2012Q4

REPORT INFORMATION
  Report Type: 
  Country: US (occurrence: US)
  Receive Date: 20121009
  Receipt Date: 20121009
  Transmission Date: 20130627
  Serious: No
  Sender: FDA-Public Use
  Company Number: US-PFIZER INC-2012249292

PATIENT
  Age: 73 Year
  Sex: Male
  Weight: 108.84 kg

DRUGS (1)
  1. LYRICA [Suspect]
     Indication: PAIN
     Dosage: 75 mg, 2x/day
     Route: 048
     Dates: start: 20121005, end: 20121007

REACTIONS (6)
  - Diarrhoea [Unknown]
  - Eructation [Unknown]
  - Flatulence [Unknown]
  - Nausea [Unknown]
  - Dizziness [Unknown]
  - Abdominal pain upper [Not Recovered/Not Resolved]
